FAERS Safety Report 21406943 (Version 1)
Quarter: 2022Q4

REPORT INFORMATION
  Report Type: Spontaneous
  Country: CA (occurrence: CA)
  Receive Date: 20221004
  Receipt Date: 20221004
  Transmission Date: 20230112
  Serious: Yes (Disabling)
  Sender: FDA-Public Use
  Company Number: CA-SAMSUNG BIOEPIS-SB-2022-24699

PATIENT
  Age: 15 Year
  Sex: Female
  Weight: 62 kg

DRUGS (2)
  1. RENFLEXIS [Suspect]
     Active Substance: INFLIXIMAB-ABDA
     Indication: Crohn^s disease
     Dosage: POWDER FOR SOLUTION INTRAVENOUS
     Route: 042
  2. RENFLEXIS [Suspect]
     Active Substance: INFLIXIMAB-ABDA
     Dosage: POWDER FOR SOLUTION INTRAVENOUS
     Route: 042

REACTIONS (4)
  - Autoimmune hepatitis [Unknown]
  - Chronic hepatitis [Unknown]
  - Portal fibrosis [Unknown]
  - Product use issue [Unknown]
